FAERS Safety Report 13604334 (Version 1)
Quarter: 2017Q2

REPORT INFORMATION
  Report Type: Spontaneous
  Country: US (occurrence: US)
  Receive Date: 20170602
  Receipt Date: 20170602
  Transmission Date: 20170830
  Serious: No
  Sender: FDA-Public Use
  Company Number: US-NOVEN PHARMACEUTICALS, INC.-US2016001376

PATIENT

DRUGS (5)
  1. TRILEPTAL [Concomitant]
     Active Substance: OXCARBAZEPINE
     Dosage: 30 MG, UNKNOWN
     Route: 062
     Dates: start: 2007
  2. DAYTRANA [Suspect]
     Active Substance: METHYLPHENIDATE
     Dosage: USED TWO 15 MG PATCHES
     Route: 062
     Dates: start: 201602
  3. TRILEPTAL [Concomitant]
     Active Substance: OXCARBAZEPINE
     Dosage: UNK UNK, UNKNOWN
  4. DAYTRANA [Suspect]
     Active Substance: METHYLPHENIDATE
     Indication: PRODUCT USED FOR UNKNOWN INDICATION
     Dosage: 30 MG, UNKNOWN
     Route: 062
     Dates: start: 2007
  5. DAYTRANA [Suspect]
     Active Substance: METHYLPHENIDATE
     Dosage: CUTTING PATCHES
     Route: 062

REACTIONS (3)
  - Wrong technique in product usage process [Recovered/Resolved]
  - Off label use [Unknown]
  - No adverse event [Unknown]

NARRATIVE: CASE EVENT DATE: 201602
